FAERS Safety Report 7062662-2 (Version None)
Quarter: 2010Q4

REPORT INFORMATION
  Report Type: 
  Country: None (occurrence: None)
  Receive Date: 20101026
  Receipt Date: 20091222
  Transmission Date: 20110411
  Serious: No
  Sender: FDA-Public Use
  Company Number: US-PFIZER INC-2009314979

PATIENT
  Sex: Male
  Weight: 112 kg

DRUGS (2)
  1. LIPITOR [Suspect]
     Indication: BLOOD CHOLESTEROL INCREASED
     Dosage: 20 MG, 1X/DAY
     Dates: start: 20010101, end: 20090101
  2. BENICAR [Concomitant]
     Indication: HYPERTENSION
     Dosage: UNK

REACTIONS (5)
  - ALOPECIA [None]
  - BLOOD GLUCOSE INCREASED [None]
  - ERECTILE DYSFUNCTION [None]
  - GLYCOSYLATED HAEMOGLOBIN INCREASED [None]
  - MYALGIA [None]
